FAERS Safety Report 23896574 (Version 5)
Quarter: 2025Q2

REPORT INFORMATION
  Report Type: Report from Study
  Country: US (occurrence: US)
  Receive Date: 20240524
  Receipt Date: 20250411
  Transmission Date: 20250716
  Serious: Yes (Hospitalization)
  Sender: TAKEDA
  Company Number: US-TAKEDA-2024TUS050495

PATIENT
  Age: 79 Year
  Sex: Female

DRUGS (49)
  1. IXAZOMIB [Suspect]
     Active Substance: IXAZOMIB
     Indication: Plasma cell myeloma
  2. IXAZOMIB [Suspect]
     Active Substance: IXAZOMIB
  3. IXAZOMIB [Suspect]
     Active Substance: IXAZOMIB
  4. PRAZOSIN HYDROCHLORIDE [Concomitant]
     Active Substance: PRAZOSIN HYDROCHLORIDE
  5. SYMBICORT [Concomitant]
     Active Substance: BUDESONIDE\FORMOTEROL FUMARATE DIHYDRATE
  6. LIOTHYRONINE SODIUM [Concomitant]
     Active Substance: LIOTHYRONINE SODIUM
  7. FOLIC ACID [Concomitant]
     Active Substance: FOLIC ACID
  8. LYRICA [Concomitant]
     Active Substance: PREGABALIN
  9. BUSPIRONE HCL [Concomitant]
     Active Substance: BUSPIRONE HYDROCHLORIDE
  10. PRISTIQ EXTENDED-RELEASE [Concomitant]
     Active Substance: DESVENLAFAXINE SUCCINATE
  11. DEXAMETHASONE [Concomitant]
     Active Substance: DEXAMETHASONE
  12. DESVENLAFAXINE SUCCINATE [Concomitant]
     Active Substance: DESVENLAFAXINE SUCCINATE
  13. PANTOPRAZOLE SODIUM [Concomitant]
     Active Substance: PANTOPRAZOLE SODIUM
  14. OXYCODONE HYDROCHLORIDE [Concomitant]
     Active Substance: OXYCODONE HYDROCHLORIDE
  15. ASPIRIN [Concomitant]
     Active Substance: ASPIRIN
  16. CALCIUM CARBONATE [Concomitant]
     Active Substance: CALCIUM CARBONATE
  17. LASIX [Concomitant]
     Active Substance: FUROSEMIDE
  18. PRILOSEC OTC [Concomitant]
     Active Substance: OMEPRAZOLE MAGNESIUM
  19. IMODIUM [Concomitant]
     Active Substance: LOPERAMIDE HYDROCHLORIDE
  20. POTASSIUM CHLORIDE [Concomitant]
     Active Substance: POTASSIUM CHLORIDE
  21. VITAMIN D [Concomitant]
     Active Substance: VITAMIN D NOS
  22. VOLTAREN ARTHRITIS PAIN [Concomitant]
     Active Substance: DICLOFENAC SODIUM
  23. ALBUTEROL SULFATE [Concomitant]
     Active Substance: ALBUTEROL SULFATE
  24. REMERON [Concomitant]
     Active Substance: MIRTAZAPINE
  25. SENNA [Concomitant]
     Active Substance: SENNOSIDES
  26. DITROPAN XL [Concomitant]
     Active Substance: OXYBUTYNIN CHLORIDE
  27. MIRALAX [Concomitant]
     Active Substance: POLYETHYLENE GLYCOL 3350
  28. PREPARATION H (MINERAL OIL\PETROLATUM\PHENYLEPHRINE HYDROCHLORIDE) [Concomitant]
     Active Substance: MINERAL OIL\PETROLATUM\PHENYLEPHRINE HYDROCHLORIDE
  29. BACTRIM DS [Concomitant]
     Active Substance: SULFAMETHOXAZOLE\TRIMETHOPRIM
  30. POMALYST [Concomitant]
     Active Substance: POMALIDOMIDE
  31. LIDOCAINE [Concomitant]
     Active Substance: LIDOCAINE
  32. MELATONIN [Concomitant]
     Active Substance: MELATONIN
  33. CYMBALTA [Concomitant]
     Active Substance: DULOXETINE HYDROCHLORIDE
  34. GABAPENTIN [Concomitant]
     Active Substance: GABAPENTIN
  35. OMEPRAZOLE [Concomitant]
     Active Substance: OMEPRAZOLE
  36. CALCIUM [Concomitant]
     Active Substance: CALCIUM
  37. KLOR-CON M20 [Concomitant]
     Active Substance: POTASSIUM CHLORIDE
  38. Nicoret [Concomitant]
  39. LENALIDOMIDE [Concomitant]
     Active Substance: LENALIDOMIDE
  40. ONDANSETRON [Concomitant]
     Active Substance: ONDANSETRON
  41. PROCHLORPERAZINE MALEATE [Concomitant]
     Active Substance: PROCHLORPERAZINE MALEATE
  42. OXYGEN [Concomitant]
     Active Substance: OXYGEN
  43. KLONOPIN [Concomitant]
     Active Substance: CLONAZEPAM
  44. Dronabinolum [Concomitant]
  45. CYCLOBENZAPRINE HYDROCHLORIDE [Concomitant]
     Active Substance: CYCLOBENZAPRINE HYDROCHLORIDE
  46. MIRTAZAPINE [Concomitant]
     Active Substance: MIRTAZAPINE
  47. IBUPROFEN [Concomitant]
     Active Substance: IBUPROFEN
  48. ACYCLOVIR [Concomitant]
     Active Substance: ACYCLOVIR
  49. NICODERM CQ [Concomitant]
     Active Substance: NICOTINE

REACTIONS (7)
  - Chronic obstructive pulmonary disease [Unknown]
  - Asthma [Unknown]
  - Depression [Recovered/Resolved]
  - Osteoarthritis [Unknown]
  - Musculoskeletal discomfort [Unknown]
  - Large intestine polyp [Not Recovered/Not Resolved]
  - Insomnia [Unknown]

NARRATIVE: CASE EVENT DATE: 20240328
